FAERS Safety Report 17272999 (Version 2)
Quarter: 2020Q1

REPORT INFORMATION
  Report Type: Spontaneous
  Country: US (occurrence: US)
  Receive Date: 20200115
  Receipt Date: 20200122
  Transmission Date: 20200409
  Serious: No
  Sender: FDA-Public Use
  Company Number: US-PFIZER INC-2020017741

PATIENT
  Age: 78 Year

DRUGS (12)
  1. DEXTROSE. [Suspect]
     Active Substance: DEXTROSE
     Dosage: UNK
  2. LIDOCAINE HCL [Suspect]
     Active Substance: LIDOCAINE HYDROCHLORIDE
     Dosage: UNK
  3. SPIRIVA RESPIMAT [Suspect]
     Active Substance: TIOTROPIUM BROMIDE
     Dosage: UNK
  4. BRIMONIDINE [Suspect]
     Active Substance: BRIMONIDINE TARTRATE
     Dosage: UNK
  5. CECLOR [Suspect]
     Active Substance: CEFACLOR
     Dosage: UNK
  6. CLINDAMYCIN. [Suspect]
     Active Substance: CLINDAMYCIN
     Dosage: UNK
  7. ZYVOX [Suspect]
     Active Substance: LINEZOLID
     Dosage: UNK
  8. NORVASC [Suspect]
     Active Substance: AMLODIPINE BESYLATE
     Dosage: UNK
  9. NEOSPORIN [Suspect]
     Active Substance: BACITRACIN ZINC\NEOMYCIN SULFATE\POLYMYXIN B SULFATE
     Dosage: UNK
  10. BIAXIN [Suspect]
     Active Substance: CLARITHROMYCIN
     Dosage: UNK
  11. MONOSODIUM GLUTAMATE [Suspect]
     Active Substance: MONOSODIUM GLUTAMATE
     Dosage: UNK
  12. NORCO [Suspect]
     Active Substance: ACETAMINOPHEN\HYDROCODONE BITARTRATE
     Dosage: UNK

REACTIONS (1)
  - Drug hypersensitivity [Unknown]
